FAERS Safety Report 8541559-2 (Version None)
Quarter: 2012Q3

REPORT INFORMATION
  Report Type: 
  Country: None (occurrence: None)
  Receive Date: 20120726
  Receipt Date: 20120518
  Transmission Date: 20120928
  Serious: No
  Sender: FDA-Public Use
  Company Number: US-MUTUAL PHARMACEUTICAL COMPANY, INC.-CLCY20120088

PATIENT
  Age: 83 Year
  Sex: Female

DRUGS (4)
  1. COLCRYS [Suspect]
     Indication: CHONDROCALCINOSIS PYROPHOSPHATE
     Route: 065
     Dates: start: 20120101, end: 20120410
  2. HYDROXYCHLOROQUINE SULFATE [Suspect]
     Indication: CHONDROCALCINOSIS PYROPHOSPHATE
     Route: 065
     Dates: start: 20120101, end: 20120410
  3. OTHER UNSPECIFIED DRUGS [Concomitant]
     Indication: PRODUCT USED FOR UNKNOWN INDICATION
     Route: 065
  4. CRESTOR [Concomitant]
     Indication: PRODUCT USED FOR UNKNOWN INDICATION
     Route: 065

REACTIONS (10)
  - DECREASED APPETITE [None]
  - ORAL DISCOMFORT [None]
  - VISUAL IMPAIRMENT [None]
  - LIP SWELLING [None]
  - ASTHENIA [None]
  - RASH [None]
  - LETHARGY [None]
  - MOOD SWINGS [None]
  - ORAL HERPES [None]
  - NAUSEA [None]
